FAERS Safety Report 8257005 (Version 6)
Quarter: 2013Q4

REPORT INFORMATION
  Report Type: Spontaneous
  Country: US (occurrence: US)
  Receive Date: 20111121
  Receipt Date: 20131002
  Transmission Date: 20140711
  Serious: Yes (Other)
  Sender: FDA-Public Use
  Company Number: US-ROCHE-793122

PATIENT
  Age: 32 Year
  Sex: Female
  Weight: 56.75 kg

DRUGS (10)
  1. ACCUTANE [Suspect]
     Indication: ACNE
     Route: 048
  2. ACCUTANE [Suspect]
     Dosage: 40MG IN MORNING AND 20MG AT NIGHT.
     Route: 048
     Dates: start: 19990101, end: 20001231
  3. ACCUTANE [Suspect]
     Route: 065
  4. NUVARING [Concomitant]
     Indication: CONTRACEPTION
  5. BREVICON [Concomitant]
     Indication: CONTRACEPTION
  6. DUAC [Concomitant]
     Indication: ACNE
  7. TAZORAC [Concomitant]
     Indication: ACNE
  8. BENZOYL PEROXIDE [Concomitant]
     Indication: ACNE
  9. RETIN A CREAM [Concomitant]
     Indication: ACNE
  10. MARIJUANA [Concomitant]
     Route: 065
     Dates: start: 200208, end: 200209

REACTIONS (7)
  - Colitis ulcerative [Unknown]
  - Inflammatory bowel disease [Unknown]
  - Crohn^s disease [Unknown]
  - Intestinal haemorrhage [Unknown]
  - Irritable bowel syndrome [Unknown]
  - Nasal dryness [Unknown]
  - Cheilitis [Unknown]
